FAERS Safety Report 7993025-0 (Version None)
Quarter: 2011Q4

REPORT INFORMATION
  Report Type: 
  Country: None (occurrence: None)
  Receive Date: 20111219
  Receipt Date: 20111215
  Transmission Date: 20120403
  Serious: Yes (Hospitalization)
  Sender: FDA-Public Use
  Company Number: FR-ROCHE-1022628

PATIENT
  Age: 49 Year
  Sex: Female

DRUGS (5)
  1. FOLIC ACID [Concomitant]
     Route: 048
  2. VALACYCLOVIR HYDROCHLORIDE [Concomitant]
     Route: 048
  3. MYCOPHENOLATE MOFETIL (CELLCEPT) [Suspect]
     Indication: PRODUCT USED FOR UNKNOWN INDICATION
     Dates: end: 20100625
  4. TACROLIMUS [Concomitant]
     Route: 048
  5. PREDNISONE TAB [Concomitant]
     Route: 048

REACTIONS (2)
  - SEPTIC SHOCK [None]
  - AGRANULOCYTOSIS [None]
